FAERS Safety Report 4366193-X (Version None)
Quarter: 2004Q3

REPORT INFORMATION
  Report Type: 
  Country: None (occurrence: None)
  Receive Date: 20040524
  Receipt Date: 20040513
  Transmission Date: 20050211
  Serious: Yes (Hospitalization)
  Sender: FDA-Public Use
  Company Number: 2004213751FR

PATIENT
  Age: 61 Year
  Sex: Male

DRUGS (10)
  1. DOXORUBICIN HCL [Suspect]
     Dosage: CYCLE 2, IV
     Route: 042
     Dates: start: 20040216, end: 20040216
  2. CYCLOPHOSPHAMIDE [Suspect]
     Dosage: CYCLE 2, IV
     Route: 042
     Dates: start: 20040216, end: 20040220
  3. ONCOVIN [Suspect]
     Dosage: 1.89 MG, CYCLE 2, IV
     Route: 042
     Dates: start: 20040216, end: 20040216
  4. PREDNISOLONE [Suspect]
     Dosage: CYCLE 2, ORAL
     Route: 048
     Dates: start: 20040217, end: 20040220
  5. OFLOXACIN [Suspect]
     Dosage: ORAL
     Route: 048
     Dates: start: 20040305, end: 20040312
  6. CEFPODOXIME PROXETIL [Suspect]
     Dosage: ORAL
     Route: 048
     Dates: start: 20040305, end: 20040312
  7. ONDANSETRON HYDROCHLORIDE [Concomitant]
  8. ALLOPURINOL TAB [Concomitant]
  9. SECALIP [Concomitant]
  10. SOLU-MEDROL [Concomitant]

REACTIONS (3)
  - AGRANULOCYTOSIS [None]
  - HYPOGAMMAGLOBULINAEMIA [None]
  - INFECTION [None]
